FAERS Safety Report 7134250-0 (Version None)
Quarter: 2010Q4

REPORT INFORMATION
  Report Type: 
  Country: None (occurrence: None)
  Receive Date: 20101203
  Receipt Date: 20101128
  Transmission Date: 20110411
  Serious: Yes (Death)
  Sender: FDA-Public Use
  Company Number: US-AMGEN-USASP2010006630

PATIENT

DRUGS (1)
  1. NPLATE [Suspect]
     Indication: PANCREATIC CARCINOMA
     Dosage: UNK
     Dates: start: 20100629

REACTIONS (1)
  - MALIGNANT NEOPLASM PROGRESSION [None]
